FAERS Safety Report 13098809 (Version 1)
Quarter: 2017Q1

REPORT INFORMATION
  Report Type: Other
  Country: CA (occurrence: CA)
  Receive Date: 20170109
  Receipt Date: 20170109
  Transmission Date: 20170428
  Serious: Yes (Hospitalization, Other)
  Sender: FDA-Public Use
  Company Number: CA-SHIRE-CA201612224

PATIENT
  Age: 61 Year
  Sex: Female
  Weight: 39.46 kg

DRUGS (9)
  1. MAGNESIUM [Concomitant]
     Active Substance: MAGNESIUM
     Indication: PRODUCT USED FOR UNKNOWN INDICATION
     Dosage: 7G, 1X/WEEK IN 500 ML NS
     Route: 042
  2. VITAMIN B12 [Concomitant]
     Active Substance: CYANOCOBALAMIN
     Indication: PRODUCT USED FOR UNKNOWN INDICATION
     Dosage: 1200 MG, 1X/DAY:QD
     Route: 048
  3. REVESTIVE [Suspect]
     Active Substance: TEDUGLUTIDE
     Indication: SHORT-BOWEL SYNDROME
     Dosage: 2.25 MG, 1X/DAY:QD
     Route: 058
     Dates: start: 20160815
  4. NORVASC [Concomitant]
     Active Substance: AMLODIPINE BESYLATE
     Indication: PRODUCT USED FOR UNKNOWN INDICATION
     Dosage: 10 MG, 1X/DAY:QD
     Route: 048
  5. NEXIUM [Concomitant]
     Active Substance: ESOMEPRAZOLE MAGNESIUM
     Indication: PRODUCT USED FOR UNKNOWN INDICATION
     Dosage: 40 MG, 1X/DAY:QD
     Route: 048
  6. TYLENOL WITH CODEINE [Concomitant]
     Active Substance: ACETAMINOPHEN\CODEINE PHOSPHATE
     Indication: CHEST DISCOMFORT
     Dosage: UNK, AS REQ^D
     Route: 065
  7. MAGNESIUM [Concomitant]
     Active Substance: MAGNESIUM
     Dosage: UNK, EVERY 3 WEEKS
     Route: 042
  8. AMILORIDE [Concomitant]
     Active Substance: AMILORIDE
     Indication: PRODUCT USED FOR UNKNOWN INDICATION
     Dosage: 10 MG, 1X/DAY:QD
     Route: 048
  9. PROLIA [Concomitant]
     Active Substance: DENOSUMAB
     Indication: PRODUCT USED FOR UNKNOWN INDICATION
     Dosage: EVERY 6 MONTHS
     Route: 030

REACTIONS (24)
  - Injection site pruritus [Unknown]
  - Cholelithiasis [Recovering/Resolving]
  - Hypoaesthesia [Unknown]
  - Weight decreased [Unknown]
  - Decreased appetite [Recovering/Resolving]
  - Insomnia [Unknown]
  - Weight gain poor [Unknown]
  - Dysphagia [Recovering/Resolving]
  - Fatigue [Not Recovered/Not Resolved]
  - Hypotension [Unknown]
  - Urticaria papular [Not Recovered/Not Resolved]
  - Nausea [Unknown]
  - Urine output increased [Unknown]
  - Faeces soft [Unknown]
  - Chest discomfort [Unknown]
  - Diarrhoea [Unknown]
  - Abdominal discomfort [Unknown]
  - Activities of daily living impaired [Unknown]
  - Steatorrhoea [Unknown]
  - Injection site bruising [Recovered/Resolved]
  - Burning sensation [Unknown]
  - Dyspepsia [Unknown]
  - Abdominal distension [Unknown]
  - Injection site erythema [Unknown]

NARRATIVE: CASE EVENT DATE: 201610
